FAERS Safety Report 5047176-3 (Version None)
Quarter: 2006Q3

REPORT INFORMATION
  Report Type: 
  Country: None (occurrence: None)
  Receive Date: 20060703
  Receipt Date: 20060620
  Transmission Date: 20061208
  Serious: Yes (Other)
  Sender: FDA-Public Use
  Company Number: 2006077820

PATIENT
  Sex: Male

DRUGS (1)
  1. VISINE II EYE DROPS [Suspect]
     Dosage: OPHTHALMIC
     Route: 047

REACTIONS (2)
  - CAUSTIC INJURY [None]
  - PAIN [None]
